FAERS Safety Report 6377879-X (Version None)
Quarter: 2009Q3

REPORT INFORMATION
  Report Type: 
  Country: None (occurrence: None)
  Receive Date: 20090925
  Receipt Date: 20090914
  Transmission Date: 20100115
  Serious: Yes (Other)
  Sender: FDA-Public Use
  Company Number: PHHY2009BR39421

PATIENT
  Sex: Female
  Weight: 50 kg

DRUGS (2)
  1. ACLASTA [Suspect]
     Indication: OSTEOPOROSIS
     Dosage: UNK
     Dates: start: 20080501
  2. ACLASTA [Suspect]
     Dosage: UNK
     Dates: start: 20090501

REACTIONS (13)
  - ACNE [None]
  - BURNING SENSATION [None]
  - FEELING ABNORMAL [None]
  - GAIT DISTURBANCE [None]
  - HYPERKERATOSIS [None]
  - INFLAMMATION [None]
  - INFLAMMATORY PAIN [None]
  - OEDEMA PERIPHERAL [None]
  - PAIN [None]
  - PAIN IN EXTREMITY [None]
  - SKIN IRRITATION [None]
  - SKIN PAPILLOMA [None]
  - TREMOR [None]
